FAERS Safety Report 5141961-5 (Version None)
Quarter: 2006Q4

REPORT INFORMATION
  Report Type: 
  Country: None (occurrence: None)
  Receive Date: 20061102
  Receipt Date: 20061016
  Transmission Date: 20070319
  Serious: Yes (Hospitalization)
  Sender: FDA-Public Use
  Company Number: PHBS2006BR16149

PATIENT
  Age: 33 Year
  Sex: Male
  Weight: 65 kg

DRUGS (3)
  1. HYDERGINE [Suspect]
     Indication: MENTAL DISORDER
     Dosage: 4.5 MG, QD
     Route: 048
  2. CARBOLITIUM [Concomitant]
     Dosage: 1 TABLET/DAY
     Route: 048
  3. HALDOL [Concomitant]
     Dosage: 1 DF, QD
     Route: 048

REACTIONS (2)
  - ABNORMAL BEHAVIOUR [None]
  - HUNGER [None]
